FAERS Safety Report 21208939 (Version 1)
Quarter: 2022Q3

REPORT INFORMATION
  Report Type: Spontaneous
  Country: GB (occurrence: GB)
  Receive Date: 20220812
  Receipt Date: 20220812
  Transmission Date: 20221027
  Serious: Yes (Death, Other)
  Sender: FDA-Public Use
  Company Number: GB-ALNYLAM PHARMACEUTICALS, INC.-ALN-2022-002775

PATIENT

DRUGS (1)
  1. ONPATTRO [Suspect]
     Active Substance: PATISIRAN SODIUM
     Indication: Product used for unknown indication
     Dosage: 27 MILLIGRAM, EVERY 3 WEEKS
     Route: 042
     Dates: start: 20211029, end: 20220804

REACTIONS (1)
  - Death [Fatal]

NARRATIVE: CASE EVENT DATE: 20220804
